FAERS Safety Report 8193928-0 (Version None)
Quarter: 2012Q1

REPORT INFORMATION
  Report Type: 
  Country: None (occurrence: None)
  Receive Date: 20120308
  Receipt Date: 20120229
  Transmission Date: 20120608
  Serious: Yes (Other)
  Sender: FDA-Public Use
  Company Number: CA-CELGENEUS-028-C5013-11110136

PATIENT
  Sex: Female
  Weight: 54.48 kg

DRUGS (7)
  1. ASPIRIN [Concomitant]
     Indication: THROMBOSIS PROPHYLAXIS
     Dosage: 81 MILLIGRAM
     Route: 048
     Dates: start: 20091102
  2. DEXAMETHASONE [Suspect]
     Indication: MULTIPLE MYELOMA
     Dosage: 20 MILLIGRAM
     Route: 065
     Dates: start: 20091110
  3. LENALIDOMIDE [Suspect]
     Indication: MULTIPLE MYELOMA
     Dosage: 10 MILLIGRAM
     Route: 048
     Dates: start: 20091110
  4. LENALIDOMIDE [Suspect]
     Route: 048
     Dates: end: 20110823
  5. DEXAMETHASONE [Suspect]
     Route: 065
     Dates: end: 20110823
  6. CELEXA [Concomitant]
     Indication: MEMORY IMPAIRMENT
     Dosage: 10 MILLIGRAM
     Route: 048
     Dates: start: 20110920
  7. PAMIDRONATE DISODIUM [Concomitant]
     Indication: PROPHYLAXIS
     Dosage: 90 MILLIGRAM
     Route: 041
     Dates: start: 20080201

REACTIONS (1)
  - SQUAMOUS CELL CARCINOMA OF SKIN [None]
